FAERS Safety Report 15682888 (Version 1)
Quarter: 2018Q4

REPORT INFORMATION
  Report Type: Spontaneous
  Country: US (occurrence: US)
  Receive Date: 20181203
  Receipt Date: 20181203
  Transmission Date: 20190205
  Serious: No
  Sender: FDA-Public Use
  Company Number: US-BAYER-2018-219299

PATIENT
  Age: 74 Year
  Sex: Female
  Weight: 69 kg

DRUGS (4)
  1. ONE-A-DAY NOS [Concomitant]
     Active Substance: MINERALS\VITAMINS
     Dosage: UNK
  2. CRANBERRYNE [Concomitant]
  3. CRANBERRY + BUCHU [Concomitant]
  4. ALEVE [Suspect]
     Active Substance: NAPROXEN SODIUM
     Dosage: 2 TO 1
     Route: 048

REACTIONS (2)
  - Therapeutic response unexpected [Unknown]
  - Product prescribing issue [Unknown]

NARRATIVE: CASE EVENT DATE: 201810
